FAERS Safety Report 17719116 (Version 1)
Quarter: 2020Q2

REPORT INFORMATION
  Report Type: Spontaneous
  Country: US (occurrence: US)
  Receive Date: 20200428
  Receipt Date: 20200428
  Transmission Date: 20200714
  Serious: No
  Sender: FDA-Public Use
  Company Number: US-PFIZER INC-2019147621

PATIENT
  Age: 69 Year
  Sex: Female
  Weight: 136.08 kg

DRUGS (2)
  1. LYRICA [Suspect]
     Active Substance: PREGABALIN
     Indication: NEUROPATHY PERIPHERAL
     Dosage: LOWER DOSE
  2. LYRICA [Suspect]
     Active Substance: PREGABALIN
     Indication: DIABETIC NEUROPATHY
     Dosage: 75 MG, 3X/DAY ( EVERY 8 HOURS)
     Route: 048
     Dates: start: 20190401

REACTIONS (4)
  - Insomnia [Unknown]
  - Sleep disorder [Unknown]
  - Discomfort [Unknown]
  - Drug ineffective [Unknown]
